FAERS Safety Report 5237366-9 (Version None)
Quarter: 2007Q1

REPORT INFORMATION
  Report Type: 
  Country: None (occurrence: None)
  Receive Date: 20070213
  Receipt Date: 20070206
  Transmission Date: 20070707
  Serious: Yes (Other)
  Sender: FDA-Public Use
  Company Number: BR-SHR-BR-2007-004861

PATIENT
  Age: 21 Year
  Sex: Female

DRUGS (1)
  1. YASMIN [Suspect]
     Dosage: 1 TAB(S), UNK
     Route: 048
     Dates: start: 20060901, end: 20070205

REACTIONS (1)
  - ECTOPIC PREGNANCY [None]
